FAERS Safety Report 7031002-7 (Version None)
Quarter: 2010Q4

REPORT INFORMATION
  Report Type: 
  Country: None (occurrence: None)
  Receive Date: 20101006
  Receipt Date: 20100622
  Transmission Date: 20110411
  Serious: No
  Sender: FDA-Public Use
  Company Number: US-BRISTOL-MYERS SQUIBB COMPANY-15163322

PATIENT

DRUGS (2)
  1. KENALOG-40 [Suspect]
     Dates: start: 20060101, end: 20070101
  2. KENALOG-10 [Suspect]
     Dates: start: 20060101, end: 20070101

REACTIONS (1)
  - TENDON INJURY [None]
